FAERS Safety Report 6450168-0 (Version None)
Quarter: 2009Q4

REPORT INFORMATION
  Report Type: 
  Country: None (occurrence: None)
  Receive Date: 20091123
  Receipt Date: 20091110
  Transmission Date: 20100525
  Serious: Yes (Hospitalization, Other)
  Sender: FDA-Public Use
  Company Number: US-ROCHE-641596

PATIENT
  Sex: Female

DRUGS (2)
  1. PEGASYS [Suspect]
     Dosage: PREFILLED SYRINGE
     Route: 065
     Dates: start: 20081103, end: 20091005
  2. COPEGUS [Suspect]
     Dosage: IN DIVIDED DOSES
     Route: 065
     Dates: start: 20081103, end: 20091005

REACTIONS (13)
  - ABASIA [None]
  - ASTHENIA [None]
  - DIZZINESS [None]
  - DYSARTHRIA [None]
  - EAR INFECTION [None]
  - GAIT DISTURBANCE [None]
  - HEADACHE [None]
  - INSOMNIA [None]
  - PLATELET COUNT DECREASED [None]
  - RED BLOOD CELL COUNT DECREASED [None]
  - ROAD TRAFFIC ACCIDENT [None]
  - VISION BLURRED [None]
  - WHITE BLOOD CELL COUNT DECREASED [None]
